FAERS Safety Report 24705131 (Version 1)
Quarter: 2024Q4

REPORT INFORMATION
  Report Type: Spontaneous
  Country: JP (occurrence: None)
  Receive Date: 20241206
  Receipt Date: 20241206
  Transmission Date: 20250114
  Serious: Yes (Life-Threatening, Hospitalization)
  Sender: INFORLIFE
  Company Number: JP-INFO-20240369

PATIENT
  Age: 79 Year
  Sex: Male

DRUGS (1)
  1. LEVOFLOXACIN [Suspect]
     Active Substance: LEVOFLOXACIN
     Indication: Inflammation
     Dosage: INTERMITTENTLY RECEIVED MULTIPLE 2-WEEK COURSES OF LEVOFLOXACIN DURING THE 1-YEAR PERIOD PRIOR TO...

REACTIONS (1)
  - Fungaemia [Not Recovered/Not Resolved]
